FAERS Safety Report 8832495 (Version 4)
Quarter: 2013Q3

REPORT INFORMATION
  Report Type: Report from Study
  Country: US (occurrence: US)
  Receive Date: 20121010
  Receipt Date: 20130828
  Transmission Date: 20140515
  Serious: Yes (Hospitalization, Other)
  Sender: FDA-Public Use
  Company Number: US-BAYER-2012-083337

PATIENT
  Age: 71 Year
  Sex: Female

DRUGS (6)
  1. NEXAVAR [Suspect]
     Indication: HEPATIC CANCER
     Dosage: 200 MG, BID
     Route: 048
     Dates: start: 20120731, end: 201208
  2. NEXAVAR [Suspect]
     Indication: HEPATIC CANCER
     Dosage: 1 TABLET DAILY
     Dates: start: 20120809
  3. NEXAVAR [Suspect]
     Indication: HEPATIC CANCER
     Dosage: 200 MG, BID
     Dates: start: 20120925, end: 201302
  4. NEXAVAR [Suspect]
     Indication: HEPATIC CANCER
     Dosage: 200 MG, BID
     Route: 048
     Dates: start: 201305, end: 201307
  5. NEXAVAR [Suspect]
     Indication: HEPATIC CANCER
     Dosage: 200 MG, QD
     Route: 048
     Dates: start: 20130812
  6. VICODIN [Concomitant]

REACTIONS (16)
  - Wound [Recovering/Resolving]
  - Wound infection [Recovering/Resolving]
  - Pain in extremity [Recovering/Resolving]
  - Oedema peripheral [Recovering/Resolving]
  - Local swelling [Recovering/Resolving]
  - Abnormal weight gain [Recovered/Resolved]
  - Impaired healing [None]
  - Weight decreased [Recovered/Resolved]
  - Pollakiuria [Recovered/Resolved]
  - Fluid retention [Recovered/Resolved]
  - Blood pressure systolic increased [Recovered/Resolved]
  - Blister [Recovering/Resolving]
  - Neuralgia [Not Recovered/Not Resolved]
  - Escherichia urinary tract infection [None]
  - Urosepsis [None]
  - Urinary tract infection staphylococcal [None]
